FAERS Safety Report 16414215 (Version 1)
Quarter: 2019Q2

REPORT INFORMATION
  Report Type: Spontaneous
  Country: US (occurrence: US)
  Receive Date: 20190611
  Receipt Date: 20190611
  Transmission Date: 20190711
  Serious: Yes (Death, Life-Threatening)
  Sender: FDA-Public Use
  Company Number: PHEH2019US024370

PATIENT
  Age: 45 Year
  Sex: Male

DRUGS (1)
  1. KYMRIAH [Suspect]
     Active Substance: TISAGENLECLEUCEL
     Indication: NON-HODGKIN^S LYMPHOMA
     Dosage: UNK UNK, ONCE/SINGLE
     Route: 065
     Dates: start: 20190529

REACTIONS (4)
  - Gait disturbance [Unknown]
  - Brain oedema [Fatal]
  - Intracranial pressure increased [Fatal]
  - Hypoacusis [Unknown]

NARRATIVE: CASE EVENT DATE: 20190602
